FAERS Safety Report 16819654 (Version 6)
Quarter: 2019Q4

REPORT INFORMATION
  Report Type: Spontaneous
  Country: US (occurrence: US)
  Receive Date: 20190917
  Receipt Date: 20191126
  Transmission Date: 20200122
  Serious: Yes (Hospitalization)
  Sender: FDA-Public Use
  Company Number: US-ACTELION-A-US2019-195461

PATIENT
  Sex: Female
  Weight: 131.07 kg

DRUGS (4)
  1. ADEMPAS [Suspect]
     Active Substance: RIOCIGUAT
     Indication: PRODUCT USED FOR UNKNOWN INDICATION
     Route: 065
  2. DILTIAZEM. [Concomitant]
     Active Substance: DILTIAZEM
  3. OPSUMIT [Suspect]
     Active Substance: MACITENTAN
     Indication: PULMONARY HYPERTENSION
     Dosage: 10 MG, QD
     Route: 048
  4. COUMADIN [Concomitant]
     Active Substance: WARFARIN SODIUM

REACTIONS (17)
  - Chest discomfort [Unknown]
  - Sinus congestion [Unknown]
  - Nasal dryness [Unknown]
  - Nasal congestion [Recovering/Resolving]
  - Heart rate increased [Unknown]
  - Fluid retention [Unknown]
  - Oedema [Unknown]
  - Dyspnoea [Unknown]
  - Dizziness [Unknown]
  - Secretion discharge [Unknown]
  - Pneumonia [Unknown]
  - Nasal crusting [Unknown]
  - Fatigue [Unknown]
  - Productive cough [Unknown]
  - Weight increased [Unknown]
  - Oedema peripheral [Unknown]
  - Epistaxis [Unknown]
